FAERS Safety Report 22603513 (Version 1)
Quarter: 2023Q2

REPORT INFORMATION
  Report Type: Spontaneous
  Country: US (occurrence: US)
  Receive Date: 20230615
  Receipt Date: 20230615
  Transmission Date: 20230722
  Serious: No
  Sender: FDA-Public Use
  Company Number: US-009507513-2305USA006830

PATIENT
  Sex: Female

DRUGS (1)
  1. KEYTRUDA [Suspect]
     Active Substance: PEMBROLIZUMAB
     Indication: Triple negative breast cancer
     Dosage: 200 MG EVERY 3 WEEK
     Route: 042
     Dates: start: 202303

REACTIONS (8)
  - Brain fog [Unknown]
  - Stress [Unknown]
  - Depression [Unknown]
  - Anxiety [Unknown]
  - Thyroid function test abnormal [Unknown]
  - Malaise [Unknown]
  - Musculoskeletal stiffness [Unknown]
  - Fatigue [Unknown]

NARRATIVE: CASE EVENT DATE: 20230101
